FAERS Safety Report 7358927-7 (Version None)
Quarter: 2011Q1

REPORT INFORMATION
  Report Type: 
  Country: None (occurrence: None)
  Receive Date: 20110317
  Receipt Date: 20110314
  Transmission Date: 20110831
  Serious: Yes (Other)
  Sender: FDA-Public Use
  Company Number: ES-BRISTOL-MYERS SQUIBB COMPANY-15607716

PATIENT
  Age: 41 Year
  Sex: Male

DRUGS (2)
  1. ABILIFY [Suspect]
     Indication: PERSONALITY DISORDER
     Dates: start: 20110312
  2. DIAZEPAM [Suspect]

REACTIONS (8)
  - ABDOMINAL PAIN UPPER [None]
  - HEAD INJURY [None]
  - HYPERHIDROSIS [None]
  - FALL [None]
  - DIZZINESS [None]
  - CHILLS [None]
  - NAUSEA [None]
  - SYNCOPE [None]
